FAERS Safety Report 11331186 (Version 1)
Quarter: 2015Q3

REPORT INFORMATION
  Report Type: Spontaneous
  Country: US (occurrence: None)
  Receive Date: 20150731
  Receipt Date: 20150731
  Transmission Date: 20151125
  Serious: Yes (Hospitalization)
  Sender: FDA-Public Use
  Company Number: None

PATIENT
  Age: 72 Year
  Sex: Male
  Weight: 108.5 kg

DRUGS (1)
  1. IODIXANOL [Suspect]
     Active Substance: IODIXANOL
     Indication: ULTRASONIC ANGIOGRAM
     Route: 042
     Dates: start: 20150729, end: 20150729

REACTIONS (4)
  - Respiratory depression [None]
  - Burning sensation [None]
  - Hypotension [None]
  - Rash generalised [None]

NARRATIVE: CASE EVENT DATE: 20150729
